FAERS Safety Report 16004746 (Version 1)
Quarter: 2019Q1

REPORT INFORMATION
  Report Type: Spontaneous
  Country: ES (occurrence: ES)
  Receive Date: 20190226
  Receipt Date: 20190226
  Transmission Date: 20190418
  Serious: Yes (Hospitalization)
  Sender: FDA-Public Use
  Company Number: ES-TEVA-2019-ES-1015988

PATIENT
  Age: 86 Year
  Sex: Female

DRUGS (1)
  1. LISINOPRIL / HIDROCLOROTIAZIDA RATIOPHARM 20 / 12,5 MG COMPRIMIDOS EFG [Suspect]
     Active Substance: HYDROCHLOROTHIAZIDE\LISINOPRIL
     Indication: HYPERTENSION
     Dosage: 1 DOSAGE FORMS DAILY; 1 IN BREAKFAST
     Route: 048
     Dates: start: 20150120, end: 20181116

REACTIONS (2)
  - Confusional state [Recovered/Resolved]
  - Hyponatraemia [Recovered/Resolved]

NARRATIVE: CASE EVENT DATE: 20181116
